FAERS Safety Report 22134751 (Version 1)
Quarter: 2023Q1

REPORT INFORMATION
  Report Type: Spontaneous
  Country: US (occurrence: None)
  Receive Date: 20230322
  Receipt Date: 20230322
  Transmission Date: 20230417
  Serious: No
  Sender: FDA-Public Use
  Company Number: None

PATIENT
  Sex: Male

DRUGS (1)
  1. STELARA [Suspect]
     Active Substance: USTEKINUMAB
     Indication: Psoriasis
     Dosage: OTHER QUANTITY : 90/1 MG/ML;?OTHER FREQUENCY : EVERY 10 WEEKS;?
     Route: 058
     Dates: start: 20220919

REACTIONS (4)
  - Rash macular [None]
  - Drug ineffective [None]
  - Therapy change [None]
  - Rash macular [None]
